FAERS Safety Report 15205552 (Version 4)
Quarter: 2018Q4

REPORT INFORMATION
  Report Type: Report from Study
  Country: US (occurrence: US)
  Receive Date: 20180726
  Receipt Date: 20181211
  Transmission Date: 20190204
  Serious: Yes (Hospitalization)
  Sender: FDA-Public Use
  Company Number: US-ALXN-A201808460AA

PATIENT
  Age: 29 Year
  Sex: Female
  Weight: 84 kg

DRUGS (14)
  1. FLEXERIL [Concomitant]
     Active Substance: CYCLOBENZAPRINE HYDROCHLORIDE
     Indication: MUSCLE SPASMS
     Dosage: 5 MG, PRN
     Route: 048
     Dates: start: 2014
  2. FLEXERIL [Concomitant]
     Active Substance: CYCLOBENZAPRINE HYDROCHLORIDE
     Dosage: 5 MG, TID PRN
     Route: 048
     Dates: start: 20180626, end: 20180702
  3. ECULIZUMAB [Suspect]
     Active Substance: ECULIZUMAB
     Indication: NEUROMYELITIS OPTICA SPECTRUM DISORDER
     Dosage: UNK
     Route: 042
     Dates: start: 20170426
  4. TYLENOL [Concomitant]
     Active Substance: ACETAMINOPHEN
     Indication: PAIN
     Dosage: 500 MG, PRN
     Route: 048
     Dates: start: 2010
  5. MICROGESTIN FE [Concomitant]
     Active Substance: ETHINYL ESTRADIOL\FERROUS FUMARATE\NORETHINDRONE ACETATE
     Indication: CONTRACEPTION
     Dosage: 1 TAB, QD
     Route: 048
     Dates: start: 2016
  6. AZATHIOPRINE. [Concomitant]
     Active Substance: AZATHIOPRINE
     Indication: PROPHYLAXIS
     Dosage: 150 MG, QD
     Route: 048
     Dates: start: 20170308
  7. IBUPROFEN. [Concomitant]
     Active Substance: IBUPROFEN
     Indication: PAIN
     Dosage: 400 MG, PRN
     Route: 048
     Dates: start: 2001
  8. PAROXETINE HCL [Concomitant]
     Active Substance: PAROXETINE HYDROCHLORIDE
     Indication: ANXIETY
     Dosage: 20 MG, QD
     Route: 048
     Dates: start: 20160803
  9. BETADINE [Concomitant]
     Active Substance: POVIDONE-IODINE
     Indication: RASH PUSTULAR
     Dosage: UNK
     Route: 065
  10. ECULIZUMAB [Suspect]
     Active Substance: ECULIZUMAB
     Dosage: UNK, Q2W
     Route: 042
     Dates: start: 20170822
  11. NORVASC [Concomitant]
     Active Substance: AMLODIPINE BESYLATE
     Indication: HYPERTENSION
     Dosage: 5 MG, QD
     Route: 048
     Dates: start: 20180305
  12. NEURONTIN [Concomitant]
     Active Substance: GABAPENTIN
     Indication: PRODUCT USED FOR UNKNOWN INDICATION
     Dosage: 600 MG, UNK
     Route: 048
     Dates: start: 20170131
  13. ECULIZUMAB [Suspect]
     Active Substance: ECULIZUMAB
     Dosage: 240 ML, UNK
     Route: 042
     Dates: start: 20180622
  14. LOTRIMIN [Concomitant]
     Active Substance: CLOTRIMAZOLE
     Indication: TINEA VERSICOLOUR
     Dosage: 1 %, BID
     Route: 061
     Dates: start: 20180626, end: 20180703

REACTIONS (2)
  - Gonorrhoea [Recovered/Resolved]
  - Bacterial sepsis [Recovered/Resolved]

NARRATIVE: CASE EVENT DATE: 20180626
